FAERS Safety Report 12336309 (Version 1)
Quarter: 2016Q2

REPORT INFORMATION
  Report Type: Spontaneous
  Country: US (occurrence: US)
  Receive Date: 20160505
  Receipt Date: 20160505
  Transmission Date: 20160815
  Serious: No
  Sender: FDA-Public Use
  Company Number: US-LEO PHARMA-241498

PATIENT
  Age: 56 Year
  Sex: Female

DRUGS (1)
  1. PICATO [Suspect]
     Active Substance: INGENOL MEBUTATE
     Indication: ACTINIC KERATOSIS
     Route: 061
     Dates: start: 20160304, end: 20160304

REACTIONS (9)
  - Application site erythema [Not Recovered/Not Resolved]
  - Insomnia [Recovered/Resolved]
  - Application site vesicles [Recovered/Resolved]
  - Application site exfoliation [Recovered/Resolved]
  - Application site pain [Recovered/Resolved]
  - Application site pain [Recovered/Resolved]
  - Application site discolouration [Not Recovered/Not Resolved]
  - Drug administered at inappropriate site [Unknown]
  - Incorrect drug administration duration [Unknown]

NARRATIVE: CASE EVENT DATE: 20160304
